FAERS Safety Report 7919689-5 (Version None)
Quarter: 2011Q4

REPORT INFORMATION
  Report Type: 
  Country: None (occurrence: None)
  Receive Date: 20111115
  Receipt Date: 20111107
  Transmission Date: 20120403
  Serious: Yes (Other)
  Sender: FDA-Public Use
  Company Number: 2011SP052105

PATIENT
  Age: 62 Year
  Sex: Female
  Weight: 72.5755 kg

DRUGS (20)
  1. PRISTIQ [Suspect]
     Indication: DEPRESSION
  2. PRISTIQ [Suspect]
     Indication: ANXIETY
  3. PAMELOR [Suspect]
     Indication: ANXIETY
  4. PAMELOR [Suspect]
     Indication: DEPRESSION
  5. ABILIFY [Suspect]
     Indication: DEPRESSION
  6. ABILIFY [Suspect]
     Indication: ANXIETY
  7. REMERON [Suspect]
     Indication: ANXIETY
  8. REMERON [Suspect]
     Indication: DEPRESSION
  9. WELLBUTRIN [Suspect]
     Indication: ANXIETY
  10. WELLBUTRIN [Suspect]
     Indication: DEPRESSION
  11. PROZAC [Suspect]
     Indication: ANXIETY
  12. PROZAC [Suspect]
     Indication: DEPRESSION
  13. CYMBALTA [Suspect]
     Indication: ANXIETY
  14. CYMBALTA [Suspect]
     Indication: DEPRESSION
  15. PAXIL [Suspect]
     Indication: DEPRESSION
  16. PAXIL [Suspect]
     Indication: ANXIETY
  17. ZOLOFT [Suspect]
     Indication: ANXIETY
  18. ZOLOFT [Suspect]
     Indication: DEPRESSION
  19. NARDIL [Suspect]
     Indication: ANXIETY
     Dosage: 30 MG;BID;
     Dates: start: 20101228
  20. NARDIL [Suspect]
     Indication: DEPRESSION
     Dosage: 30 MG;BID;
     Dates: start: 20101228

REACTIONS (4)
  - DRUG INEFFECTIVE [None]
  - JOINT SWELLING [None]
  - OEDEMA PERIPHERAL [None]
  - THROMBOSIS [None]
